FAERS Safety Report 12231761 (Version 1)
Quarter: 2016Q2

REPORT INFORMATION
  Report Type: Spontaneous
  Country: US (occurrence: US)
  Receive Date: 20160401
  Receipt Date: 20160401
  Transmission Date: 20160815
  Serious: Yes (Life-Threatening, Other)
  Sender: FDA-Public Use
  Company Number: US-VALIDUS PHARMACEUTICALS LLC-US-2016VAL000605

PATIENT

DRUGS (26)
  1. ALBUTEROL                          /00139501/ [Concomitant]
     Active Substance: ALBUTEROL
     Indication: PRODUCT USED FOR UNKNOWN INDICATION
  2. ALDACTONE [Concomitant]
     Active Substance: SPIRONOLACTONE
     Indication: PRODUCT USED FOR UNKNOWN INDICATION
  3. SILDENAFIL. [Concomitant]
     Active Substance: SILDENAFIL
     Indication: PRODUCT USED FOR UNKNOWN INDICATION
  4. SODIUM CHLORIDE. [Concomitant]
     Active Substance: SODIUM CHLORIDE
     Indication: PRODUCT USED FOR UNKNOWN INDICATION
  5. METHADONE HYDROCHLORIDE. [Suspect]
     Active Substance: METHADONE HYDROCHLORIDE
     Dosage: UNK
  6. CHLOROTHIAZIDE. [Concomitant]
     Active Substance: CHLOROTHIAZIDE
     Indication: PRODUCT USED FOR UNKNOWN INDICATION
  7. MILRINONE [Concomitant]
     Active Substance: MILRINONE
     Indication: PRODUCT USED FOR UNKNOWN INDICATION
  8. CALCIUM CHLORIDE. [Concomitant]
     Active Substance: CALCIUM CHLORIDE
     Indication: PRODUCT USED FOR UNKNOWN INDICATION
  9. NYSTATIN. [Concomitant]
     Active Substance: NYSTATIN
     Indication: PRODUCT USED FOR UNKNOWN INDICATION
  10. GENTAMICIN                         /00047102/ [Concomitant]
     Active Substance: GENTAMICIN
     Indication: PRODUCT USED FOR UNKNOWN INDICATION
  11. NITROPRUSSIDE [Concomitant]
     Active Substance: NITROPRUSSIDE
     Indication: PRODUCT USED FOR UNKNOWN INDICATION
  12. LIDOCAINE HYDROCHLORIDE. [Suspect]
     Active Substance: LIDOCAINE HYDROCHLORIDE
     Indication: PRODUCT USED FOR UNKNOWN INDICATION
     Dosage: 20 ?G/KG, UNK
     Route: 042
  13. TOBRAMYCIN. [Concomitant]
     Active Substance: TOBRAMYCIN
     Indication: PRODUCT USED FOR UNKNOWN INDICATION
  14. ALBUMIN [Concomitant]
     Active Substance: ALBUMIN HUMAN
     Indication: PRODUCT USED FOR UNKNOWN INDICATION
  15. VECURONIUM [Concomitant]
     Active Substance: VECURONIUM BROMIDE
     Indication: PRODUCT USED FOR UNKNOWN INDICATION
  16. MEROPENEM. [Concomitant]
     Active Substance: MEROPENEM
     Indication: PRODUCT USED FOR UNKNOWN INDICATION
  17. MORPHINE [Suspect]
     Active Substance: MORPHINE
     Indication: DELIRIUM
     Dosage: 40 MG, EVERY 4 HOURS
  18. METHADONE HYDROCHLORIDE. [Suspect]
     Active Substance: METHADONE HYDROCHLORIDE
     Indication: DELIRIUM
     Dosage: 5 MG, EVERY 6 HOURS
  19. BECLOMETHASONE                     /00212602/ [Concomitant]
     Active Substance: BECLOMETHASONE
     Indication: PRODUCT USED FOR UNKNOWN INDICATION
  20. POTASSIUM CHLORIDE. [Concomitant]
     Active Substance: POTASSIUM CHLORIDE
     Indication: PRODUCT USED FOR UNKNOWN INDICATION
  21. HEPARIN [Concomitant]
     Active Substance: HEPARIN SODIUM
     Indication: PRODUCT USED FOR UNKNOWN INDICATION
  22. CALCIUM [Concomitant]
     Active Substance: CALCIUM
     Indication: PRODUCT USED FOR UNKNOWN INDICATION
  23. FUROSEMIDE. [Suspect]
     Active Substance: FUROSEMIDE
     Indication: PRODUCT USED FOR UNKNOWN INDICATION
     Dosage: 400 ?G/KG, EVERY HOUR
     Route: 042
  24. LORAZEPAM. [Suspect]
     Active Substance: LORAZEPAM
     Indication: DELIRIUM
     Dosage: 4 MG, EVERY 6 HOURS
  25. HYDROCORTISONE. [Suspect]
     Active Substance: HYDROCORTISONE
     Indication: PRODUCT USED FOR UNKNOWN INDICATION
     Dosage: 2.5 MG, EVERY 12 HOURS
     Route: 042
  26. ACETAMINOPHEN. [Concomitant]
     Active Substance: ACETAMINOPHEN
     Indication: PRODUCT USED FOR UNKNOWN INDICATION

REACTIONS (4)
  - Condition aggravated [Recovered/Resolved]
  - Electrocardiogram QT prolonged [Recovered/Resolved]
  - Delirium [Recovered/Resolved]
  - Product use issue [Recovered/Resolved]
